FAERS Safety Report 22617088 (Version 5)
Quarter: 2024Q4

REPORT INFORMATION
  Report Type: Spontaneous
  Country: CA (occurrence: CA)
  Receive Date: 20230620
  Receipt Date: 20241211
  Transmission Date: 20250115
  Serious: Yes (Hospitalization, Disabling, Other)
  Sender: HIKMA
  Company Number: CA-Hikma Pharmaceuticals USA Inc.-CA-H14001-23-02110

PATIENT
  Age: 50 Year
  Sex: Male

DRUGS (67)
  1. ASPIRIN [Suspect]
     Active Substance: ASPIRIN
     Indication: Product used for unknown indication
     Dosage: UNKNOWN
     Route: 065
  2. ADVAIR HFA [Suspect]
     Active Substance: FLUTICASONE PROPIONATE\SALMETEROL XINAFOATE
     Indication: Product used for unknown indication
     Dosage: 2 DOSAGE FORM, BID  |  DAILY DOSE UNIT : DOSAGE FORMS  |  UNIT DOSE UNIT : DOSAGE FORMS
     Route: 065
  3. ADVAIR HFA [Suspect]
     Active Substance: FLUTICASONE PROPIONATE\SALMETEROL XINAFOATE
     Dosage: 4 DOSAGE FORM, QD
     Route: 065
  4. ADVAIR HFA [Suspect]
     Active Substance: FLUTICASONE PROPIONATE\SALMETEROL XINAFOATE
     Dosage: UNK, BID
     Route: 065
  5. ADVAIR HFA [Suspect]
     Active Substance: FLUTICASONE PROPIONATE\SALMETEROL XINAFOATE
     Dosage: UNK
     Route: 065
  6. AMINO ACIDS\VITAMINS [Suspect]
     Active Substance: AMINO ACIDS\VITAMINS
     Indication: Product used for unknown indication
     Dosage: UNKNOWN
     Route: 065
  7. CYANOCOBALAMIN [Suspect]
     Active Substance: CYANOCOBALAMIN
     Indication: Product used for unknown indication
     Dosage: 10 MILLIGRAM, QD
     Route: 065
  8. CYANOCOBALAMIN [Suspect]
     Active Substance: CYANOCOBALAMIN
     Dosage: 10 MILLIGRAM, QID
     Route: 065
  9. .ALPHA.-TOCOPHEROL, D- [Suspect]
     Active Substance: .ALPHA.-TOCOPHEROL, D-
     Indication: Product used for unknown indication
     Dosage: 400 MILLIGRAM, QD
     Route: 065
  10. .ALPHA.-TOCOPHEROL, D- [Suspect]
     Active Substance: .ALPHA.-TOCOPHEROL, D-
     Dosage: UNK
     Route: 065
  11. DOCONEXENT\ICOSAPENT [Suspect]
     Active Substance: DOCONEXENT\ICOSAPENT
     Indication: Product used for unknown indication
     Dosage: UNKNOWN
     Route: 065
  12. DOCONEXENT\ICOSAPENT\OMEGA-3 FATTY ACIDS [Suspect]
     Active Substance: DOCONEXENT\ICOSAPENT\OMEGA-3 FATTY ACIDS
     Indication: Product used for unknown indication
     Dosage: UNKNOWN
     Route: 065
  13. DOXYCYCLINE [Suspect]
     Active Substance: DOXYCYCLINE
     Indication: Product used for unknown indication
     Dosage: 100 MILLIGRAM, BID
     Route: 065
  14. DOXYCYCLINE [Suspect]
     Active Substance: DOXYCYCLINE
     Dosage: 200 MILLIGRAM, QD
     Route: 065
  15. DOXYCYCLINE HYCLATE [Suspect]
     Active Substance: DOXYCYCLINE HYCLATE
     Dosage: 100 MILLIGRAM, BID
     Route: 065
  16. DOXYCYCLINE HYCLATE [Suspect]
     Active Substance: DOXYCYCLINE HYCLATE
     Indication: Product used for unknown indication
     Dosage: 200 MILLIGRAM, QD
     Route: 065
  17. VITAMINS [Suspect]
     Active Substance: VITAMINS
     Indication: Product used for unknown indication
     Dosage: 400 MICROGRAM, QD
     Route: 065
  18. FISH OIL [Suspect]
     Active Substance: FISH OIL
     Indication: Product used for unknown indication
     Dosage: 600 EPA/300 DHA
     Route: 065
  19. GLUCOSAMINE [Suspect]
     Active Substance: GLUCOSAMINE
     Indication: Product used for unknown indication
     Dosage: UNKNOWN
     Route: 065
  20. ALBUTEROL\GUAIFENESIN [Suspect]
     Active Substance: ALBUTEROL\GUAIFENESIN
     Indication: Product used for unknown indication
     Dosage: UNK, QD
     Route: 065
  21. LORAZEPAM [Suspect]
     Active Substance: LORAZEPAM
     Indication: Product used for unknown indication
     Dosage: .5 MILLIGRAM
     Route: 065
  22. LORAZEPAM [Suspect]
     Active Substance: LORAZEPAM
     Dosage: UNK
     Route: 065
  23. OMEPRAZOLE [Suspect]
     Active Substance: OMEPRAZOLE
     Indication: Product used for unknown indication
     Dosage: 20 MILLIGRAM, QD
     Route: 065
  24. OMEPRAZOLE [Suspect]
     Active Substance: OMEPRAZOLE
     Dosage: 40 MILLIGRAM
     Route: 065
  25. MEPOLIZUMAB [Suspect]
     Active Substance: MEPOLIZUMAB
     Dosage: 100 MILLIGRAM
     Route: 042
  26. MEPOLIZUMAB [Suspect]
     Active Substance: MEPOLIZUMAB
     Indication: Asthma
     Dosage: 100 MILLIGRAM
     Route: 058
  27. NUCALA [Suspect]
     Active Substance: MEPOLIZUMAB
     Indication: Asthma
     Dosage: 100 MILLIGRAM
     Route: 042
  28. UNSPECIFIED INGREDIENT [Suspect]
     Active Substance: UNSPECIFIED INGREDIENT
     Indication: Product used for unknown indication
     Dosage: UNKNOWN
     Route: 065
  29. OMEGA-3 FATTY ACIDS [Suspect]
     Active Substance: OMEGA-3 FATTY ACIDS
     Indication: Product used for unknown indication
     Dosage: UNKNOWN
     Route: 065
  30. OMEPRAZOLE SODIUM [Suspect]
     Active Substance: OMEPRAZOLE SODIUM
     Dosage: 20 MILLIGRAM
     Route: 048
  31. OMEPRAZOLE SODIUM [Suspect]
     Active Substance: OMEPRAZOLE SODIUM
     Indication: Product used for unknown indication
     Dosage: 40 MILLIGRAM
     Route: 048
  32. PREDNISONE [Suspect]
     Active Substance: PREDNISONE
     Indication: Addison^s disease
     Dosage: 30 MILLIGRAM
     Route: 065
  33. PREDNISONE [Suspect]
     Active Substance: PREDNISONE
     Dosage: 35 MILLIGRAM, QD
     Route: 065
  34. PREDNISONE [Suspect]
     Active Substance: PREDNISONE
     Dosage: 5 MILLIGRAM, QD
     Route: 065
  35. PREDNISONE ACETATE [Suspect]
     Active Substance: PREDNISONE ACETATE
     Indication: Product used for unknown indication
     Dosage: 25 MILLIGRAM
     Route: 065
  36. PULMICORT TURBUHALER [Suspect]
     Active Substance: BUDESONIDE
     Dosage: 2 DOSAGE FORM, BID  |  DAILY DOSE UNIT : DOSAGE FORMS  |  UNIT DOSE UNIT : DOSAGE FORMS
     Route: 065
  37. PULMICORT TURBUHALER [Suspect]
     Active Substance: BUDESONIDE
     Indication: Asthma
     Dosage: 3 DOSAGE FORM, BID  |  DAILY DOSE UNIT : DOSAGE FORMS  |  UNIT DOSE UNIT : DOSAGE FORMS
     Route: 065
  38. PULMICORT TURBUHALER [Suspect]
     Active Substance: BUDESONIDE
     Dosage: 600 MICROGRAM, BID
     Route: 065
  39. PULMICORT TURBUHALER [Suspect]
     Active Substance: BUDESONIDE
     Dosage: 6 DOSAGE FORM, QD
     Route: 055
  40. ALBUTEROL [Suspect]
     Active Substance: ALBUTEROL
     Indication: Asthma
     Dosage: 1 DOSAGE FORM
     Route: 065
  41. ALBUTEROL [Suspect]
     Active Substance: ALBUTEROL
     Indication: Product used for unknown indication
     Dosage: 5 DOSAGE FORM, BID
     Route: 065
  42. ALBUTEROL [Suspect]
     Active Substance: ALBUTEROL
     Dosage: 10 DOSAGE FORM, QD
     Route: 065
  43. SALICYLIC ACID [Suspect]
     Active Substance: SALICYLIC ACID
     Indication: Product used for unknown indication
     Dosage: UNKNOWN
     Route: 065
  44. SALICYLIC ACID [Suspect]
     Active Substance: SALICYLIC ACID
     Indication: Product used for unknown indication
     Dosage: UNKNOWN
     Route: 045
  45. SPIRIVA [Suspect]
     Active Substance: TIOTROPIUM BROMIDE MONOHYDRATE
     Indication: Product used for unknown indication
     Dosage: 3 MILLIGRAM, QD
     Route: 065
  46. SPIRIVA [Suspect]
     Active Substance: TIOTROPIUM BROMIDE MONOHYDRATE
     Indication: Asthma
     Dosage: 2 DOSAGE FORM, QD  |  DAILY DOSE UNIT : DOSAGE FORMS  |  UNIT DOSE UNIT : DOSAGE FORMS
     Route: 065
  47. TIOTROPIUM BROMIDE MONOHYDRATE [Suspect]
     Active Substance: TIOTROPIUM BROMIDE MONOHYDRATE
     Indication: Product used for unknown indication
     Dosage: 3 MICROGRAM, QD
     Route: 065
  48. TIOTROPIUM BROMIDE MONOHYDRATE [Suspect]
     Active Substance: TIOTROPIUM BROMIDE MONOHYDRATE
     Dosage: 3 DOSAGE FORM, QD  |  DAILY DOSE UNIT : DOSAGE FORMS  |  UNIT DOSE UNIT : DOSAGE FORMS
     Route: 065
  49. TIOTROPIUM BROMIDE MONOHYDRATE [Suspect]
     Active Substance: TIOTROPIUM BROMIDE MONOHYDRATE
     Dosage: 5 MILLIGRAM, QD
     Route: 065
  50. TIOTROPIUM BROMIDE MONOHYDRATE [Suspect]
     Active Substance: TIOTROPIUM BROMIDE MONOHYDRATE
     Dosage: 5 MICROGRAM, QD
     Route: 065
  51. TOBRAMYCIN [Suspect]
     Active Substance: TOBRAMYCIN\TOBRAMYCIN SULFATE
     Indication: Product used for unknown indication
     Dosage: 160 MILLIGRAM, BID
  52. TOBRAMYCIN [Suspect]
     Active Substance: TOBRAMYCIN\TOBRAMYCIN SULFATE
     Dosage: 320 MILLIGRAM, QD
     Route: 055
  53. VENTOLIN [Suspect]
     Active Substance: ALBUTEROL SULFATE
     Indication: Product used for unknown indication
     Dosage: 1 DOSAGE FORM  |  UNIT DOSE UNIT : DOSAGE FORMS
     Route: 065
  54. VENTOLIN [Suspect]
     Active Substance: ALBUTEROL SULFATE
     Indication: Asthma
     Dosage: 5 DOSAGE FORM, BID  |  DAILY DOSE UNIT : DOSAGE FORMS  |  UNIT DOSE UNIT : DOSAGE FORMS
     Route: 065
  55. VENTOLIN [Suspect]
     Active Substance: ALBUTEROL SULFATE
     Dosage: UNK, BID
     Route: 065
  56. VITAMIN D3 [Suspect]
     Active Substance: CHOLECALCIFEROL
     Indication: Product used for unknown indication
     Dosage: 20000.0 MILLIGRAM, QD
     Route: 065
  57. VITAMIN K1 [Suspect]
     Active Substance: PHYTONADIONE
     Indication: Product used for unknown indication
     Dosage: 10 MILLIGRAM, QD
     Route: 065
  58. VITAMIN K1 [Suspect]
     Active Substance: PHYTONADIONE
     Dosage: 400 MILLIGRAM, QD
     Route: 065
  59. CEFTAZIDIME PENTAHYDRATE [Concomitant]
     Active Substance: CEFTAZIDIME
     Indication: Product used for unknown indication
     Dosage: UNKNOWN
     Route: 065
  60. MEROPENEM [Concomitant]
     Active Substance: MEROPENEM
     Indication: Product used for unknown indication
     Dosage: UNKNOWN
     Route: 042
  61. METHYLPREDNISOLONE [Concomitant]
     Active Substance: METHYLPREDNISOLONE
     Indication: Product used for unknown indication
     Dosage: UNKNOWN
     Route: 065
  62. PANCRELIPASE [Concomitant]
     Active Substance: PANCRELIPASE
     Indication: Product used for unknown indication
     Dosage: UNKNOWN
     Route: 065
  63. SODIUM CHLORIDE [Concomitant]
     Active Substance: SODIUM CHLORIDE
     Indication: Product used for unknown indication
     Dosage: UNKNOWN
     Route: 045
  64. SODIUM CHLORIDE [Concomitant]
     Active Substance: SODIUM CHLORIDE
     Indication: Product used for unknown indication
     Dosage: UNKNOWN
     Route: 065
  65. VITAMIN E [Concomitant]
     Active Substance: .ALPHA.-TOCOPHEROL
     Indication: Product used for unknown indication
     Dosage: 400 MICROGRAM, QD
     Route: 065
  66. VITAMINS NOS [Concomitant]
     Active Substance: VITAMINS
     Indication: Product used for unknown indication
     Dosage: 2 DOSAGE FORM, QD
     Route: 065
  67. IODINE [Suspect]
     Active Substance: IODINE

REACTIONS (9)
  - Asthma [Unknown]
  - Dyspnoea [Unknown]
  - Infection [Unknown]
  - Loss of personal independence in daily activities [Unknown]
  - Addison^s disease [Not Recovered/Not Resolved]
  - Productive cough [Unknown]
  - Sleep disorder due to a general medical condition [Unknown]
  - Wheezing [Unknown]
  - Therapeutic product effect incomplete [Unknown]
